FAERS Safety Report 10230023 (Version 1)
Quarter: 2014Q2

REPORT INFORMATION
  Report Type: Spontaneous
  Country: US (occurrence: None)
  Receive Date: 20140610
  Receipt Date: 20140610
  Transmission Date: 20141212
  Serious: Yes (Disabling)
  Sender: FDA-Public Use
  Company Number: None

PATIENT
  Age: 45 Year
  Sex: Female

DRUGS (3)
  1. VELCADE [Suspect]
     Indication: PLASMA CELL MYELOMA
     Route: 058
     Dates: start: 20120923, end: 20121231
  2. REVLIMID [Suspect]
     Indication: PLASMA CELL MYELOMA
     Route: 048
  3. DEXAMETHASONE [Concomitant]

REACTIONS (3)
  - Neuropathy peripheral [None]
  - Fatigue [None]
  - Hypoaesthesia [None]
